FAERS Safety Report 6030984-X (Version None)
Quarter: 2009Q1

REPORT INFORMATION
  Report Type: 
  Country: None (occurrence: None)
  Receive Date: 20090106
  Receipt Date: 20090106
  Transmission Date: 20090719
  Serious: Yes (Death, Hospitalization)
  Sender: FDA-Public Use
  Company Number: None

PATIENT
  Age: 88 Year
  Sex: Male
  Weight: 88.4514 kg

DRUGS (1)
  1. OMNIPAQUE 140 [Suspect]
     Indication: PAIN
     Dosage: ONE TIME
     Dates: start: 20080324, end: 20080324

REACTIONS (2)
  - CARDIAC ARREST [None]
  - DRUG PRESCRIBING ERROR [None]
